FAERS Safety Report 23974680 (Version 1)
Quarter: 2024Q2

REPORT INFORMATION
  Report Type: Spontaneous
  Country: US (occurrence: US)
  Receive Date: 20240614
  Receipt Date: 20240614
  Transmission Date: 20240716
  Serious: No
  Sender: FDA-Public Use
  Company Number: US-STRIDES ARCOLAB LIMITED-2023SP014232

PATIENT
  Age: 66 Year
  Sex: Male

DRUGS (3)
  1. HYDROCORTISONE [Suspect]
     Active Substance: HYDROCORTISONE\HYDROCORTISONE ACETATE
     Indication: Palmar-plantar erythrodysaesthesia syndrome
     Dosage: UNK
     Route: 061
  2. PACLITAXEL [Concomitant]
     Active Substance: PACLITAXEL
     Indication: Angiosarcoma metastatic
     Dosage: UNK, ONCE A WEEK
     Route: 065
  3. PACLITAXEL [Concomitant]
     Active Substance: PACLITAXEL
     Indication: Hepatic angiosarcoma

REACTIONS (1)
  - Drug ineffective for unapproved indication [Unknown]
